FAERS Safety Report 6821665-0 (Version None)
Quarter: 2010Q3

REPORT INFORMATION
  Report Type: 
  Country: None (occurrence: None)
  Receive Date: 20100707
  Receipt Date: 20090507
  Transmission Date: 20110219
  Serious: No
  Sender: FDA-Public Use
  Company Number: US-PFIZER INC-2009180804

PATIENT
  Sex: Male

DRUGS (2)
  1. ZOLOFT [Suspect]
     Indication: GENERALISED ANXIETY DISORDER
     Dosage: 25 MG, UNK
  2. ZOLOFT [Suspect]
     Indication: FREQUENT BOWEL MOVEMENTS

REACTIONS (4)
  - ABNORMAL FAECES [None]
  - DIARRHOEA [None]
  - FREQUENT BOWEL MOVEMENTS [None]
  - WEIGHT DECREASED [None]
